FAERS Safety Report 6032563-7 (Version None)
Quarter: 2009Q1

REPORT INFORMATION
  Report Type: 
  Country: None (occurrence: None)
  Receive Date: 20090109
  Receipt Date: 20090102
  Transmission Date: 20090719
  Serious: Yes (Disabling, Other)
  Sender: FDA-Public Use
  Company Number: GR-AVENTIS-200814303EU

PATIENT
  Age: 73 Year
  Sex: Male
  Weight: 70 kg

DRUGS (7)
  1. FUROSEMIDE [Suspect]
     Route: 048
     Dates: start: 20000101
  2. SPIRONOLACTONE [Suspect]
     Route: 048
     Dates: start: 20010101
  3. DIGOXIN [Concomitant]
     Route: 048
     Dates: start: 20000101
  4. SINTROM [Concomitant]
     Route: 048
     Dates: start: 19980101
  5. PANCORAN [Concomitant]
     Route: 048
     Dates: start: 20010101
  6. SIMVASTATIN [Concomitant]
     Route: 048
     Dates: start: 20030101
  7. MODOPAR [Concomitant]
     Route: 048
     Dates: start: 20080101

REACTIONS (6)
  - AKINESIA [None]
  - BRADYKINESIA [None]
  - PARKINSONISM [None]
  - SALIVARY HYPERSECRETION [None]
  - SPINAL DEFORMITY [None]
  - TREMOR [None]
